FAERS Safety Report 11062548 (Version 1)
Quarter: 2015Q2

REPORT INFORMATION
  Report Type: Spontaneous
  Country: US (occurrence: None)
  Receive Date: 20150423
  Receipt Date: 20150423
  Transmission Date: 20150821
  Serious: No
  Sender: FDA-Public Use
  Company Number: None

PATIENT
  Age: 79 Year
  Sex: Female

DRUGS (3)
  1. ENBREL [Suspect]
     Active Substance: ETANERCEPT
     Indication: RHEUMATOID ARTHRITIS
     Route: 058
     Dates: start: 20130402
  2. DILTIAZEM [Concomitant]
     Active Substance: DILTIAZEM
  3. TIKOSYN [Concomitant]
     Active Substance: DOFETILIDE

REACTIONS (3)
  - Injection site haemorrhage [None]
  - Injection site swelling [None]
  - Injection site pain [None]

NARRATIVE: CASE EVENT DATE: 20150421
